FAERS Safety Report 10505708 (Version 4)
Quarter: 2015Q2

REPORT INFORMATION
  Report Type: Report from Study
  Country: BR (occurrence: BR)
  Receive Date: 20141008
  Receipt Date: 20150610
  Transmission Date: 20150821
  Serious: Yes (Other)
  Sender: FDA-Public Use
  Company Number: BR-ABBVIE-14P-020-1292862-00

PATIENT
  Age: 60 Year
  Sex: Female
  Weight: 73 kg

DRUGS (9)
  1. RIVOTRIL [Concomitant]
     Active Substance: CLONAZEPAM
     Indication: SEDATIVE THERAPY
     Dosage: DAILY DOSE: 5 DROPS; BEFORE BEDTIME
     Route: 048
     Dates: start: 2012
  2. PROPAFENONE HCL [Suspect]
     Active Substance: PROPAFENONE HYDROCHLORIDE
     Indication: HEART RATE INCREASED
     Dosage: DAILY DOSE: 1.5 TABLET; IN THE MORNING AND AT NIGHT
     Route: 048
     Dates: start: 201412
  3. CALCIUM [Concomitant]
     Active Substance: CALCIUM
     Indication: MINERAL SUPPLEMENTATION
     Dosage: ONE TABLET AFTER LUNCH
     Route: 048
     Dates: start: 2009
  4. CITONEURIN [Concomitant]
     Active Substance: CYANOCOBALAMIN\PYRIDOXINE HYDROCHLORIDE\THIAMINE
     Indication: MINERAL SUPPLEMENTATION
     Dosage: ONE INJECTION EVERY 3 MONTHS
     Route: 030
     Dates: start: 2006
  5. OMEPRAZOLE. [Concomitant]
     Active Substance: OMEPRAZOLE
     Indication: GASTRITIS
     Dosage: DAILY DOSE: 20 MILLIGRAM; IN FASTING
     Route: 048
     Dates: start: 1999
  6. CENTRUM [Concomitant]
     Active Substance: VITAMINS
     Indication: VITAMIN SUPPLEMENTATION
     Dosage: ONCE A DAY AFTER LUNCH
     Route: 048
     Dates: start: 2009
  7. PROPAFENONE HCL [Suspect]
     Active Substance: PROPAFENONE HYDROCHLORIDE
     Indication: HEART RATE DECREASED
     Dosage: DAILY DOSE: 1 TABLET; IN THE MORNING AND AT NIGHT
     Route: 048
     Dates: start: 2011
  8. TIBOLONE [Concomitant]
     Active Substance: TIBOLONE
     Indication: MENOPAUSE
     Dosage: FORM STRENGTH: 2.5 UNKNOWN, DAILY DOSE: 1 TABLET; IN THE MORNING
     Route: 048
     Dates: start: 2009
  9. SYNTHROID [Suspect]
     Active Substance: LEVOTHYROXINE SODIUM
     Indication: HYPOTHYROIDISM
     Dosage: DAILY DOSE: 150 MICROGRAM; IN FASTING
     Route: 048
     Dates: start: 1999

REACTIONS (3)
  - Syncope [Unknown]
  - Atrial fibrillation [Unknown]
  - Cardiac fibrillation [Unknown]

NARRATIVE: CASE EVENT DATE: 201412
